FAERS Safety Report 23115363 (Version 2)
Quarter: 2024Q1

REPORT INFORMATION
  Report Type: Spontaneous
  Country: US (occurrence: US)
  Receive Date: 20231027
  Receipt Date: 20240108
  Transmission Date: 20240409
  Serious: No
  Sender: FDA-Public Use
  Company Number: US-BIOVITRUM-2023-US-017246

PATIENT
  Age: 72 Year
  Sex: Female

DRUGS (2)
  1. DOPTELET [Suspect]
     Active Substance: AVATROMBOPAG MALEATE
     Indication: Hepatic cirrhosis
     Dosage: 1 DOPTELET TABLET A DAY.
     Route: 048
     Dates: start: 202305
  2. DOPTELET [Suspect]
     Active Substance: AVATROMBOPAG MALEATE
     Dosage: 20MG, 3 TIMES A WEEK
     Route: 048
     Dates: start: 202305

REACTIONS (6)
  - Hepatic cirrhosis [Unknown]
  - Platelet count decreased [Unknown]
  - Hepatomegaly [Unknown]
  - Condition aggravated [Unknown]
  - Platelet count abnormal [Unknown]
  - Splenomegaly [Unknown]

NARRATIVE: CASE EVENT DATE: 20230901
